FAERS Safety Report 4508336-0 (Version None)
Quarter: 2004Q4

REPORT INFORMATION
  Report Type: 
  Country: None (occurrence: None)
  Receive Date: 20041123
  Receipt Date: 20040109
  Transmission Date: 20050328
  Serious: No
  Sender: FDA-Public Use
  Company Number: US-GLAXOSMITHKLINE-A0492243A

PATIENT
  Age: 63 Year
  Sex: Female

DRUGS (4)
  1. WELLBUTRIN [Suspect]
     Indication: FATIGUE
     Dosage: 150MG PER DAY
     Route: 048
     Dates: start: 20030121
  2. PRINIVIL [Concomitant]
  3. PREMARIN [Concomitant]
  4. ESTRATEST [Concomitant]

REACTIONS (1)
  - FEELING JITTERY [None]
